FAERS Safety Report 8423468-2 (Version None)
Quarter: 2012Q2

REPORT INFORMATION
  Report Type: 
  Country: None (occurrence: None)
  Receive Date: 20120608
  Receipt Date: 20120601
  Transmission Date: 20120825
  Serious: Yes (Death, Hospitalization, Other)
  Sender: FDA-Public Use
  Company Number: BR-ELI_LILLY_AND_COMPANY-BR201206000289

PATIENT
  Sex: Male
  Weight: 63 kg

DRUGS (12)
  1. GEMZAR [Suspect]
     Indication: BRONCHIAL CARCINOMA
     Dosage: 1700 MG, UNKNOWN
     Route: 042
  2. METHADONE HCL [Concomitant]
     Dosage: 10 MG, EVERY 8 HRS
     Route: 065
  3. CISPLATIN [Concomitant]
     Indication: BRONCHIAL CARCINOMA
     Dosage: 136 MG, UNKNOWN
     Route: 042
  4. ONDANSETRON [Concomitant]
     Dosage: 8 MG, UNKNOWN
     Route: 042
  5. FORMOTEROL W/BUDESONIDE [Concomitant]
     Dosage: UNK, BID
     Route: 065
  6. DEXAMETHASONE [Concomitant]
     Dosage: 20 MG, UNKNOWN
     Route: 042
  7. LACTULOSE [Concomitant]
     Dosage: UNK, UNKNOWN
     Route: 065
  8. MORPHINE [Concomitant]
     Dosage: 10 MG, EVERY 4 HRS
     Route: 065
  9. AMITRIPTYLINE HCL [Concomitant]
     Dosage: 25 MG, QD
     Route: 065
  10. GEMZAR [Suspect]
     Dosage: 1700 MG, UNKNOWN
     Route: 042
  11. ACETAMINOPHEN [Concomitant]
     Dosage: 500 MG, EVERY 6 HRS
     Route: 065
  12. BISACODYL [Concomitant]
     Dosage: 5 MG, QD
     Route: 065

REACTIONS (4)
  - CARDIO-RESPIRATORY ARREST [None]
  - SEPSIS [None]
  - LEUKOPENIA [None]
  - ERYTHROPENIA [None]
